FAERS Safety Report 16005993 (Version 2)
Quarter: 2019Q2

REPORT INFORMATION
  Report Type: Spontaneous
  Country: US (occurrence: US)
  Receive Date: 20190226
  Receipt Date: 20190404
  Transmission Date: 20190711
  Serious: Yes (Other)
  Sender: FDA-Public Use
  Company Number: US-ASTRAZENECA-2019SE30429

PATIENT
  Sex: Male
  Weight: 97.1 kg

DRUGS (4)
  1. PRILOSEC [Suspect]
     Active Substance: OMEPRAZOLE MAGNESIUM
     Indication: GASTROOESOPHAGEAL REFLUX DISEASE
     Dosage: NORMAL DOSE
     Route: 048
  2. SYMBICORT [Suspect]
     Active Substance: BUDESONIDE\FORMOTEROL FUMARATE DIHYDRATE
     Indication: EMPHYSEMA
     Dosage: 2 PUFFS ONCE A DAY
     Route: 055
     Dates: start: 201812
  3. PRILOSEC [Suspect]
     Active Substance: OMEPRAZOLE MAGNESIUM
     Indication: GASTROOESOPHAGEAL REFLUX DISEASE
     Dosage: HIGH DOSE
     Route: 048
  4. PRILOSEC OTC [Suspect]
     Active Substance: OMEPRAZOLE MAGNESIUM
     Indication: GASTROOESOPHAGEAL REFLUX DISEASE
     Dosage: 20.0MG UNKNOWN
     Route: 048

REACTIONS (23)
  - Gait disturbance [Unknown]
  - Pneumonia [Unknown]
  - Visual impairment [Unknown]
  - Influenza [Unknown]
  - Pyrexia [Unknown]
  - Loss of consciousness [Unknown]
  - Insomnia [Unknown]
  - Intentional product misuse [Unknown]
  - Anxiety [Unknown]
  - Diverticulitis [Unknown]
  - Hypotension [Unknown]
  - Lung disorder [Unknown]
  - Memory impairment [Unknown]
  - Product dose omission [Unknown]
  - Bronchitis [Unknown]
  - Nausea [Unknown]
  - Drug ineffective [Unknown]
  - Device malfunction [Unknown]
  - Hepatitis C [Recovered/Resolved]
  - Depression [Unknown]
  - Liver injury [Unknown]
  - Emphysema [Unknown]
  - Product taste abnormal [Unknown]
